FAERS Safety Report 13535642 (Version 1)
Quarter: 2017Q2

REPORT INFORMATION
  Report Type: Spontaneous
  Country: US (occurrence: US)
  Receive Date: 20170511
  Receipt Date: 20170511
  Transmission Date: 20170830
  Serious: Yes (Hospitalization)
  Sender: FDA-Public Use
  Company Number: None

PATIENT
  Age: 64 Year
  Sex: Female

DRUGS (26)
  1. KLONOPIN [Concomitant]
     Active Substance: CLONAZEPAM
  2. LANSOPRAZOLE. [Concomitant]
     Active Substance: LANSOPRAZOLE
  3. MIACALCIN [Concomitant]
     Active Substance: CALCITONIN SALMON
  4. OMEPRAZOLE. [Concomitant]
     Active Substance: OMEPRAZOLE
  5. CARBIDOPA. [Concomitant]
     Active Substance: CARBIDOPA
  6. CLOBETASOL [Concomitant]
     Active Substance: CLOBETASOL
  7. PRANDIN [Concomitant]
     Active Substance: REPAGLINIDE
  8. TOPIRAMATE. [Concomitant]
     Active Substance: TOPIRAMATE
  9. ZANTAC [Concomitant]
     Active Substance: RANITIDINE HYDROCHLORIDE
  10. BACLOFEN. [Concomitant]
     Active Substance: BACLOFEN
  11. FLUOXETINE [Concomitant]
     Active Substance: FLUOXETINE HYDROCHLORIDE
  12. KEPPRA [Concomitant]
     Active Substance: LEVETIRACETAM
  13. LANTUS [Concomitant]
     Active Substance: INSULIN GLARGINE
  14. GLATOPA [Suspect]
     Active Substance: GLATIRAMER ACETATE
     Indication: MULTIPLE SCLEROSIS
     Dosage: 20MG/ML 3 TIMES A WEEK SUBCUTANEOUSLY
     Route: 058
     Dates: start: 20100614
  15. FIORICET [Concomitant]
     Active Substance: ACETAMINOPHEN\BUTALBITAL\CAFFEINE
  16. HUMALOG [Concomitant]
     Active Substance: INSULIN LISPRO
  17. KLOR-CON [Concomitant]
     Active Substance: POTASSIUM CHLORIDE
  18. LISINOPRIL. [Concomitant]
     Active Substance: LISINOPRIL
  19. BELCOMP [Concomitant]
  20. CLARITIN [Concomitant]
     Active Substance: LORATADINE
  21. DEPAKOTE [Concomitant]
     Active Substance: DIVALPROEX SODIUM
  22. FLUTICASONE. [Concomitant]
     Active Substance: FLUTICASONE
  23. VERELAN [Concomitant]
     Active Substance: VERAPAMIL HYDROCHLORIDE
  24. CALAN [Concomitant]
     Active Substance: VERAPAMIL HYDROCHLORIDE
  25. SYNTHROID [Concomitant]
     Active Substance: LEVOTHYROXINE SODIUM
  26. TEMAZEPAM. [Concomitant]
     Active Substance: TEMAZEPAM

REACTIONS (1)
  - Parkinson^s disease [None]
